FAERS Safety Report 18600727 (Version 1)
Quarter: 2020Q4

REPORT INFORMATION
  Report Type: Spontaneous
  Country: US (occurrence: US)
  Receive Date: 20201210
  Receipt Date: 20201210
  Transmission Date: 20210114
  Serious: Yes (Death, Other)
  Sender: FDA-Public Use
  Company Number: US-AMGEN-USASP2020200153

PATIENT

DRUGS (7)
  1. CYCLOPHOSPHAMIDE;VINCRISTINE [Concomitant]
     Dosage: UNK
  2. BLINATUMOMAB [Suspect]
     Active Substance: BLINATUMOMAB
     Indication: B PRECURSOR TYPE ACUTE LEUKAEMIA
     Dosage: UNK
     Route: 065
  3. PONATINIB [Concomitant]
     Active Substance: PONATINIB
     Dosage: UNK
  4. BOSUTINIB [Concomitant]
     Active Substance: BOSUTINIB
     Dosage: UNK
  5. DEXAMETHASONE. [Concomitant]
     Active Substance: DEXAMETHASONE
     Dosage: UNK
  6. DASATINIB. [Concomitant]
     Active Substance: DASATINIB
     Dosage: UNK
  7. FLAG-IDA [Concomitant]
     Active Substance: CYTARABINE\FLUDARABINE\GRANULOCYTE COLONY-STIMULATING FACTOR NOS\IDARUBICIN
     Dosage: UNK

REACTIONS (10)
  - Acute lymphocytic leukaemia [Unknown]
  - Fungal infection [Unknown]
  - Minimal residual disease [Unknown]
  - Pyrexia [Unknown]
  - Neurotoxicity [Unknown]
  - Therapeutic product effect incomplete [Unknown]
  - Drug ineffective [Unknown]
  - Death [Fatal]
  - Cytokine release syndrome [Unknown]
  - Hepatic failure [Unknown]
